FAERS Safety Report 22112325 (Version 1)
Quarter: 2023Q1

REPORT INFORMATION
  Report Type: Spontaneous
  Country: DE (occurrence: DE)
  Receive Date: 20230319
  Receipt Date: 20230319
  Transmission Date: 20230418
  Serious: Yes (Congenital Anomaly, Other)
  Sender: FDA-Public Use
  Company Number: DE-EMBRYOTOX-202106364

PATIENT
  Age: 1 Day
  Sex: Female
  Weight: 4.278 kg

DRUGS (3)
  1. SERTRALINE [Suspect]
     Active Substance: SERTRALINE HYDROCHLORIDE
     Indication: Depression
     Dosage: UNK (100 [MG/D ]/ SINCE 01/21: 100 MG/D, REDUCED TO 50 MG/D IN GW 33.4, REDUCED TO 25 MG/D IN GW 34.
     Route: 064
     Dates: start: 20210116, end: 20210922
  2. BOOSTRIX POLIO [Concomitant]
     Active Substance: DIPHTHERIA AND TETANUS TOXOIDS AND ACELLULAR PERTUSSIS ADSORBED AND INACTIVATED POLIOVIRUS VACCINE
     Indication: Immunisation
     Dosage: UNK
     Route: 064
     Dates: start: 20210825, end: 20210825
  3. VENLAFAXINE [Concomitant]
     Active Substance: VENLAFAXINE HYDROCHLORIDE
     Indication: Depression
     Dosage: 75 MILLIGRAM, ONCE A DAY
     Route: 064
     Dates: start: 20210923, end: 20211022

REACTIONS (3)
  - Atrial septal defect [Unknown]
  - Pulmonary valve stenosis congenital [Unknown]
  - Foetal exposure during pregnancy [Unknown]

NARRATIVE: CASE EVENT DATE: 20211001
